FAERS Safety Report 17077613 (Version 1)
Quarter: 2019Q4

REPORT INFORMATION
  Report Type: Spontaneous
  Country: JP (occurrence: JP)
  Receive Date: 20191126
  Receipt Date: 20191126
  Transmission Date: 20200122
  Serious: Yes (Death)
  Sender: FDA-Public Use
  Company Number: JP-BAYER-2019-207519

PATIENT
  Age: 82 Year
  Sex: Male

DRUGS (5)
  1. BAYASPIRIN 100 MG [Concomitant]
     Active Substance: ASPIRIN
  2. AMINOLEBAN [Concomitant]
     Active Substance: AMINO ACIDS, SOURCE UNSPECIFIED
  3. NEXAVAR [Suspect]
     Active Substance: SORAFENIB
     Indication: HEPATOCELLULAR CARCINOMA
     Dosage: ADMINISTERED 200 MG AND 400 MG EVERY OTHER DAY
     Route: 048
     Dates: start: 20131220, end: 20191004
  4. OLMETEC [Concomitant]
     Active Substance: OLMESARTAN MEDOXOMIL
  5. LIVACT [AMINO ACIDS NOS] [Concomitant]

REACTIONS (2)
  - Hepatocellular carcinoma [Fatal]
  - Off label use [None]

NARRATIVE: CASE EVENT DATE: 20131220
